FAERS Safety Report 4724295-X (Version None)
Quarter: 2005Q3

REPORT INFORMATION
  Report Type: 
  Country: None (occurrence: None)
  Receive Date: 20050726
  Receipt Date: 20050216
  Transmission Date: 20060218
  Serious: Yes (Hospitalization, Disabling)
  Sender: FDA-Public Use
  Company Number: US-ABBOTT-05P-163-0290876-00

PATIENT
  Sex: Female
  Weight: 104.5 kg

DRUGS (9)
  1. DEPAKOTE [Suspect]
     Indication: MANIA
     Route: 048
     Dates: start: 20010701, end: 20050101
  2. DEPAKOTE [Suspect]
     Dates: end: 20050101
  3. DEPAKOTE [Suspect]
     Indication: MANIA
     Dates: start: 20050301
  4. LORAZEPAM [Concomitant]
     Indication: AGITATION
     Route: 048
  5. QUETIAPINE [Concomitant]
     Indication: DEPRESSION
     Route: 048
  6. IBUPROFEN [Concomitant]
     Indication: PAIN
     Route: 048
     Dates: start: 20050101
  7. LEVOTHYROXINE SODIUM [Concomitant]
     Indication: HYPOTHYROIDISM
  8. LORAZEPAM [Concomitant]
     Indication: DRUG USE FOR UNKNOWN INDICATION
  9. HALDOL [Concomitant]
     Indication: DRUG USE FOR UNKNOWN INDICATION

REACTIONS (7)
  - ARTHRALGIA [None]
  - BLOOD CORTISOL DECREASED [None]
  - GAIT DISTURBANCE [None]
  - OEDEMA PERIPHERAL [None]
  - SCHIZOPHRENIA [None]
  - STRESS [None]
  - URINARY INCONTINENCE [None]
